FAERS Safety Report 20598900 (Version 1)
Quarter: 2022Q1

REPORT INFORMATION
  Report Type: Spontaneous
  Country: CA (occurrence: CA)
  Receive Date: 20220315
  Receipt Date: 20220315
  Transmission Date: 20220424
  Serious: Yes (Other)
  Sender: FDA-Public Use
  Company Number: CA-002147023-NVSC2022CA052429

PATIENT
  Age: 11 Year
  Sex: Female

DRUGS (3)
  1. XOLAIR [Suspect]
     Active Substance: OMALIZUMAB
     Indication: Asthma
     Dosage: UNK
     Route: 065
  2. XOLAIR [Suspect]
     Active Substance: OMALIZUMAB
     Indication: Hypersensitivity
  3. CICLESONIDE [Suspect]
     Active Substance: CICLESONIDE
     Indication: Asthma
     Dosage: UNK UNK, QD
     Route: 065

REACTIONS (7)
  - Adrenal insufficiency [Unknown]
  - Skin lesion [Unknown]
  - Burning sensation [Unknown]
  - Eosinophilic oesophagitis [Unknown]
  - Hypersensitivity [Unknown]
  - Injection site swelling [Unknown]
  - Asthma [Unknown]
